FAERS Safety Report 8076499-9 (Version None)
Quarter: 2011Q4

REPORT INFORMATION
  Report Type: 
  Country: None (occurrence: None)
  Receive Date: 20111221
  Receipt Date: 20110225
  Transmission Date: 20120403
  Serious: Yes (Other)
  Sender: FDA-Public Use
  Company Number: PHHY2011US15607

PATIENT
  Age: 70 Year
  Sex: Male

DRUGS (12)
  1. EXJADE [Suspect]
     Indication: MYELODYSPLASTIC SYNDROME
     Dosage: ORAL
     Route: 048
     Dates: start: 20110209, end: 20110217
  2. EXJADE [Suspect]
     Indication: TRANSFUSION
     Dosage: ORAL
     Route: 048
     Dates: start: 20110209, end: 20110217
  3. PREDNISONE TAB [Concomitant]
  4. TACROLIMUS [Concomitant]
  5. CALCITROL (CALCIUM CARBONATE, ERGOCALCIFEROL, RETINOL) [Concomitant]
     Indication: IRON OVERLOAD
  6. VALSARTAN [Concomitant]
  7. PLAVIX [Concomitant]
  8. HUMULIN (INSULIN HUMAN INJECTION, ISOPHANE) [Concomitant]
  9. INSULIN ASPART (INSULIN ASPART) [Concomitant]
  10. FOLIC ACID [Concomitant]
  11. LASIX [Concomitant]
  12. NORVASC [Concomitant]

REACTIONS (4)
  - HEPATIC FUNCTION ABNORMAL [None]
  - BLOOD UREA INCREASED [None]
  - BLOOD CREATININE INCREASED [None]
  - DIARRHOEA [None]
